FAERS Safety Report 8334601-5 (Version None)
Quarter: 2012Q2

REPORT INFORMATION
  Report Type: 
  Country: None (occurrence: None)
  Receive Date: 20120503
  Receipt Date: 20120423
  Transmission Date: 20120825
  Serious: Yes (Hospitalization)
  Sender: FDA-Public Use
  Company Number: BR-US-EMD SERONO, INC.-7123243

PATIENT
  Sex: Female

DRUGS (2)
  1. ARMONET [Concomitant]
     Indication: PRODUCT USED FOR UNKNOWN INDICATION
  2. REBIF [Suspect]
     Indication: RELAPSING-REMITTING MULTIPLE SCLEROSIS
     Dates: start: 20120207, end: 20120411

REACTIONS (14)
  - ABDOMINAL DISTENSION [None]
  - ABDOMINAL RIGIDITY [None]
  - INJECTION SITE DISCOMFORT [None]
  - RED BLOOD CELL COUNT DECREASED [None]
  - ASPARTATE AMINOTRANSFERASE ABNORMAL [None]
  - ASTHENIA [None]
  - MYALGIA [None]
  - PAIN IN EXTREMITY [None]
  - ALANINE AMINOTRANSFERASE ABNORMAL [None]
  - CENTRAL NERVOUS SYSTEM LESION [None]
  - OEDEMA PERIPHERAL [None]
  - SENSATION OF HEAVINESS [None]
  - PERIPHERAL COLDNESS [None]
  - PRURITUS [None]
